FAERS Safety Report 9375281 (Version 3)
Quarter: 2013Q3

REPORT INFORMATION
  Report Type: Report from Study
  Country: FR (occurrence: FR)
  Receive Date: 20130628
  Receipt Date: 20130719
  Transmission Date: 20140515
  Serious: Yes (Other)
  Sender: FDA-Public Use
  Company Number: FR-AMGEN-FRACT2013045453

PATIENT
  Age: 52 Year
  Sex: Female
  Weight: 66 kg

DRUGS (16)
  1. PANITUMUMAB [Suspect]
     Indication: OESOPHAGEAL ADENOCARCINOMA
     Dosage: 396 MG, UNK
     Route: 042
     Dates: start: 20130402
  2. 5 FU [Concomitant]
     Indication: GASTROOESOPHAGEAL CANCER
     Dosage: UNK
     Route: 042
     Dates: start: 20130402
  3. ELVORINE [Concomitant]
     Indication: GASTROOESOPHAGEAL CANCER
     Dosage: 356 MG, UNK
     Route: 042
     Dates: start: 20130402
  4. OXALIPLATIN [Concomitant]
     Indication: GASTROOESOPHAGEAL CANCER
     Dosage: 151.3 MG, UNK
     Route: 042
     Dates: start: 20130402
  5. DOLIPRANE [Concomitant]
     Dosage: UNK
     Route: 048
     Dates: start: 20130416
  6. DOXYCYCLINE [Concomitant]
     Indication: RASH
     Dosage: UNK
     Route: 048
     Dates: start: 20130416
  7. MOTILIUM [Concomitant]
     Indication: NAUSEA
     Dosage: UNK
     Route: 048
     Dates: start: 20130516
  8. SPASFON LYOC [Concomitant]
     Indication: ABDOMINAL PAIN
     Dosage: UNK
     Route: 048
     Dates: start: 20130416
  9. DEXERYL [Concomitant]
     Indication: DRY SKIN
     Dosage: UNK
     Dates: start: 20130603
  10. OGASTORO [Concomitant]
     Indication: GASTROOESOPHAGEAL REFLUX DISEASE
     Dosage: UNK
     Route: 048
     Dates: start: 20130315
  11. PLITICAN [Concomitant]
     Indication: NAUSEA
     Dosage: UNK
     Route: 042
     Dates: start: 20130315
  12. PLITICAN [Concomitant]
     Indication: VOMITING
  13. VOGALENE [Concomitant]
     Indication: NAUSEA
     Dosage: UNK
     Route: 048
     Dates: start: 20130324
  14. VOGALENE [Concomitant]
     Indication: VOMITING
  15. ATARAX [Concomitant]
     Indication: PRURITUS
     Dosage: UNK
     Route: 048
     Dates: start: 20130416
  16. IMOVANE [Concomitant]
     Indication: INSOMNIA
     Dosage: UNK
     Route: 048
     Dates: start: 20130417

REACTIONS (1)
  - Hypokalaemia [Recovered/Resolved]
